FAERS Safety Report 4435659-6 (Version None)
Quarter: 2004Q3

REPORT INFORMATION
  Report Type: 
  Country: None (occurrence: None)
  Receive Date: 20040726
  Receipt Date: 20040315
  Transmission Date: 20050211
  Serious: No
  Sender: FDA-Public Use
  Company Number: US_000847304

PATIENT
  Age: 54 Year
  Sex: Female
  Weight: 56 kg

DRUGS (7)
  1. FORTEO [Suspect]
     Indication: OSTEOPOROSIS
     Dosage: 20 UG/DAY
     Dates: start: 20040315
  2. EVISTA [Concomitant]
     Indication: OSTEOPOROSIS
     Dosage: 60 MG/1 DAY
     Dates: start: 20000801
  3. CARDIZEM CD [Concomitant]
  4. SYNTHROID [Concomitant]
  5. PRILOSEC [Concomitant]
  6. CALCIUM WITH VITAMIN D [Concomitant]
  7. VITAMIN E [Concomitant]

REACTIONS (5)
  - DIZZINESS [None]
  - DYSPNOEA [None]
  - INJECTION SITE JOINT REDNESS [None]
  - INJECTION SITE URTICARIA [None]
  - NAUSEA [None]
